FAERS Safety Report 22259467 (Version 6)
Quarter: 2024Q3

REPORT INFORMATION
  Report Type: Spontaneous
  Country: DE (occurrence: DE)
  Receive Date: 20230427
  Receipt Date: 20240904
  Transmission Date: 20241016
  Serious: Yes (Other)
  Sender: LUPIN
  Company Number: DE-EMA-DD-20230420-6644853-072016

PATIENT
  Age: 3 Year
  Sex: Male

DRUGS (10)
  1. LEVETIRACETAM [Suspect]
     Active Substance: LEVETIRACETAM
     Indication: Epilepsy with myoclonic-atonic seizures
     Dosage: UNK
     Route: 065
  2. LAMOTRIGINE [Suspect]
     Active Substance: LAMOTRIGINE
     Indication: Epilepsy with myoclonic-atonic seizures
     Dosage: UNK
     Route: 065
     Dates: end: 201802
  3. BROMHEXINE HYDROCHLORIDE [Suspect]
     Active Substance: BROMHEXINE HYDROCHLORIDE
     Indication: Epilepsy with myoclonic-atonic seizures
     Dosage: UNK
     Route: 065
  4. METHYLPREDNISOLONE [Suspect]
     Active Substance: METHYLPREDNISOLONE
     Indication: Product used for unknown indication
     Dosage: UNK, PULSATILE METHYLPREDNISOLONE THERAPY
     Route: 065
  5. CLONAZEPAM [Suspect]
     Active Substance: CLONAZEPAM
     Indication: Epilepsy with myoclonic-atonic seizures
     Dosage: UNK
     Route: 065
  6. PRIMIDONE [Suspect]
     Active Substance: PRIMIDONE
     Indication: Epilepsy with myoclonic-atonic seizures
     Dosage: UNK
     Route: 065
  7. VALPROATE [Suspect]
     Active Substance: VALPROIC ACID
     Indication: Epilepsy with myoclonic-atonic seizures
     Dosage: UNK
     Route: 065
  8. ETHOSUXIMIDE [Suspect]
     Active Substance: ETHOSUXIMIDE
     Indication: Epilepsy with myoclonic-atonic seizures
     Dosage: UNK
     Route: 065
     Dates: end: 201705
  9. ZONEGRAN [Suspect]
     Active Substance: ZONISAMIDE
     Indication: Epilepsy with myoclonic-atonic seizures
     Dosage: UNK
     Route: 048
     Dates: start: 2013, end: 2013
  10. CLOBAZAM [Suspect]
     Active Substance: CLOBAZAM
     Indication: Epilepsy with myoclonic-atonic seizures
     Dosage: UNK
     Route: 065

REACTIONS (8)
  - Somnolence [Unknown]
  - Ataxia [Unknown]
  - Status epilepticus [Recovered/Resolved]
  - Encephalopathy [Unknown]
  - Developmental delay [Unknown]
  - Fatigue [Unknown]
  - Altered state of consciousness [Unknown]
  - Drug ineffective [Unknown]

NARRATIVE: CASE EVENT DATE: 20130101
